FAERS Safety Report 17609557 (Version 1)
Quarter: 2020Q2

REPORT INFORMATION
  Report Type: Spontaneous
  Country: DK (occurrence: DK)
  Receive Date: 20200401
  Receipt Date: 20200401
  Transmission Date: 20200713
  Serious: Yes (Hospitalization)
  Sender: FDA-Public Use
  Company Number: DK-PFIZER INC-2020133037

PATIENT
  Age: 74 Year
  Sex: Female

DRUGS (14)
  1. MIDAZOLAM. [Suspect]
     Active Substance: MIDAZOLAM
     Indication: SEDATIVE THERAPY
     Dosage: 5 MG, UNK
     Route: 042
     Dates: start: 20200226, end: 20200226
  2. SPARKAL [Concomitant]
     Active Substance: AMILORIDE HYDROCHLORIDE
     Indication: HYPERTENSION
     Dosage: 1 DF, 1X/DAY. STRENGTH: 50 + 5 MG
     Route: 048
     Dates: start: 201801
  3. ZOPICLONE [Concomitant]
     Active Substance: ZOPICLONE
     Indication: INSOMNIA
     Dosage: 3.75 MG, AS NEEDED
     Route: 048
     Dates: start: 20200212
  4. TERBUTALINE [Concomitant]
     Active Substance: TERBUTALINE
     Indication: ASTHMA
     Dosage: DOSE: 1 INHALATION AS NEEDED. STRENGTH: 0.5 MG/DOSE
     Route: 055
     Dates: start: 20150911
  5. DIGOXIN. [Concomitant]
     Active Substance: DIGOXIN
     Indication: ARRHYTHMIA
     Dosage: 125 MG, 1X/DAY
     Route: 048
     Dates: start: 20200218
  6. ACTILAX [SODIUM PICOSULFATE] [Concomitant]
     Indication: CONSTIPATION
     Dosage: 5 DROPS AS NEEDED, MAX X1/DAILY
     Route: 048
     Dates: start: 20200211
  7. PROLIA [Concomitant]
     Active Substance: DENOSUMAB
     Indication: OSTEOPOROSIS
     Dosage: 1 DF, EVERY 6 MONTHS
     Dates: start: 20160504
  8. ATROVENT [Concomitant]
     Active Substance: IPRATROPIUM BROMIDE
     Indication: RHINORRHOEA
     Dosage: 6 DF, 1X/DAY
     Route: 045
  9. SIMVASTATIN. [Concomitant]
     Active Substance: SIMVASTATIN
     Indication: HYPERCHOLESTEROLAEMIA
     Dosage: 20 MG, 1X/DAY
     Route: 048
  10. PARACETAMOL [Concomitant]
     Active Substance: ACETAMINOPHEN
     Indication: PAIN
     Dosage: 4000 MG, 1X/DAY
     Route: 048
     Dates: start: 20200212
  11. CONTALGIN [Suspect]
     Active Substance: MORPHINE SULFATE
     Indication: PAIN
     Dosage: 40 MG, 2X/DAY
     Route: 048
  12. CONTALGIN [Suspect]
     Active Substance: MORPHINE SULFATE
     Dosage: 40 MG, 2X/DAY
     Route: 048
  13. SPARKAL [Concomitant]
     Active Substance: AMILORIDE HYDROCHLORIDE
     Dosage: 1 DF, 1X/DAY. STRENGTH: 50 + 5 MG
     Route: 048
     Dates: start: 201801
  14. CONTALGIN [Suspect]
     Active Substance: MORPHINE SULFATE
     Dosage: TOOK MORE THAN DOUBLE DOSE (NORMAL DOSE: 40 MG X2/DAILY))
     Route: 048
     Dates: start: 20200226, end: 20200226

REACTIONS (4)
  - Lung disorder [Unknown]
  - Malaise [Not Recovered/Not Resolved]
  - Intentional overdose [Unknown]
  - Cognitive disorder [Unknown]

NARRATIVE: CASE EVENT DATE: 202002
